FAERS Safety Report 23449326 (Version 2)
Quarter: 2024Q1

REPORT INFORMATION
  Report Type: Report from Study
  Country: GB (occurrence: GB)
  Receive Date: 20240129
  Receipt Date: 20240226
  Transmission Date: 20240409
  Serious: Yes (Hospitalization, Other)
  Sender: FDA-Public Use
  Company Number: GB-CELGENE-GBR-20190106359

PATIENT
  Age: 59 Year
  Sex: Male

DRUGS (5)
  1. DEXAMETHASONE [Suspect]
     Active Substance: DEXAMETHASONE
     Indication: Plasma cell myeloma
     Dosage: DOSAGE TEXT: 40 MILLIGRAM
     Route: 048
     Dates: start: 20181226, end: 20190116
  2. DEXAMETHASONE [Suspect]
     Active Substance: DEXAMETHASONE
     Indication: Plasma cell myeloma
     Dosage: 40 MILLIGRAM FREQUENCY TEXT: DAYS 1,8,15,22 OF A 28 DAY CYCLE 40 MILLIGRAM DURATION TEXT : CYCLE 2
     Route: 065
     Dates: start: 20181126, end: 20181216
  3. POMALIDOMIDE [Suspect]
     Active Substance: POMALIDOMIDE
     Indication: Plasma cell myeloma
     Dosage: DOSAGE TEXT: 4 MILLIGRAM
     Route: 048
     Dates: start: 20181226, end: 20190113
  4. POMALIDOMIDE [Suspect]
     Active Substance: POMALIDOMIDE
     Indication: Plasma cell myeloma
     Dosage: DOSAGE TEXT: 4 MILLIGRAM, FREQUENCY TEXT: DAYS 1-21 OF A 28 DAY CYCLE
     Route: 048
     Dates: start: 20181126, end: 20181216
  5. DEXAMETHASONE [Suspect]
     Active Substance: DEXAMETHASONE
     Indication: Plasma cell myeloma
     Dosage: DOSAGE TEXT: FREQUENCY TEXT: DAYS 1,8,15,22 OF A 28 DAY CYCLE 40 MILLIGRAM DURATION TEXT : CYCLE 2
     Route: 048
     Dates: start: 20181126, end: 20181216

REACTIONS (3)
  - Neutropenic sepsis [Recovered/Resolved]
  - Pulmonary sepsis [Recovered/Resolved]
  - Neutropenia [Recovered/Resolved]

NARRATIVE: CASE EVENT DATE: 20190113
